FAERS Safety Report 4512947-6 (Version None)
Quarter: 2004Q4

REPORT INFORMATION
  Report Type: 
  Country: None (occurrence: None)
  Receive Date: 20041130
  Receipt Date: 20041119
  Transmission Date: 20050328
  Serious: Yes (Disabling)
  Sender: FDA-Public Use
  Company Number: FR-BRISTOL-MYERS SQUIBB COMPANY-12775680

PATIENT
  Age: 67 Year
  Sex: Female

DRUGS (4)
  1. ENDOXAN [Suspect]
     Indication: NON-HODGKIN'S LYMPHOMA
     Dosage: -INTERRUPTED
     Route: 042
     Dates: start: 20040310, end: 20040310
  2. ZOPHREN [Suspect]
     Indication: NON-HODGKIN'S LYMPHOMA
     Dosage: - INTERRUPTED
     Route: 042
     Dates: start: 20040310, end: 20040310
  3. FLUDARA [Suspect]
     Indication: NON-HODGKIN'S LYMPHOMA
     Dosage: -INTERRUPTED
     Route: 042
     Dates: start: 20040310, end: 20040310
  4. MABTHERA [Suspect]
     Indication: NON-HODGKIN'S LYMPHOMA
     Dosage: -INTERRUPTED
     Route: 042
     Dates: start: 20040310, end: 20040310

REACTIONS (3)
  - ARTHRALGIA [None]
  - MYALGIA [None]
  - PANCYTOPENIA [None]
